FAERS Safety Report 24906856 (Version 1)
Quarter: 2025Q1

REPORT INFORMATION
  Report Type: Spontaneous
  Country: US (occurrence: US)
  Receive Date: 20250130
  Receipt Date: 20250130
  Transmission Date: 20250409
  Serious: No
  Sender: SANOFI AVENTIS
  Company Number: US-SA-2025SA028746

PATIENT
  Age: 9 Year
  Sex: Male
  Weight: 39.41 kg

DRUGS (4)
  1. DUPIXENT [Suspect]
     Active Substance: DUPILUMAB
     Indication: Dermatitis atopic
     Route: 058
     Dates: start: 20250126, end: 20250126
  2. ZYRTEC [Concomitant]
     Active Substance: CETIRIZINE HYDROCHLORIDE
  3. EPIPEN [Concomitant]
     Active Substance: EPINEPHRINE
  4. ROBATHOL [Concomitant]

REACTIONS (1)
  - Injection site swelling [Recovered/Resolved]

NARRATIVE: CASE EVENT DATE: 20250126
